FAERS Safety Report 24584934 (Version 2)
Quarter: 2024Q4

REPORT INFORMATION
  Report Type: Spontaneous
  Country: BR (occurrence: BR)
  Receive Date: 20241106
  Receipt Date: 20241108
  Transmission Date: 20250114
  Serious: Yes (Death, Hospitalization)
  Sender: MYLAN
  Company Number: BR-MYLANLABS-2024M1099287

PATIENT
  Age: 89 Year
  Sex: Male

DRUGS (4)
  1. TRAMADOL [Suspect]
     Active Substance: TRAMADOL
     Indication: Rhabdomyolysis
     Dosage: 100 MILLIGRAM, Q8H
     Route: 042
  2. FUROSEMIDE [Suspect]
     Active Substance: FUROSEMIDE
     Indication: Rhabdomyolysis
     Dosage: 20 MILLIGRAM
     Route: 065
  3. CEFTRIAXONE [Suspect]
     Active Substance: CEFTRIAXONE
     Indication: Rhabdomyolysis
     Dosage: 2 GRAM, BID (RECEIVED IN 500ML OF NORMAL SALINE)
     Route: 042
  4. SODIUM CHLORIDE [Concomitant]
     Active Substance: SODIUM CHLORIDE
     Indication: Vehicle solution use
     Dosage: 500 MILLILITER, BID (CEFTRIAXONE 2G WAS DISSOLVED IN 500ML OF SALINE)
     Route: 042

REACTIONS (1)
  - Drug ineffective [Fatal]
